FAERS Safety Report 9774853 (Version 1)
Quarter: 2013Q4

REPORT INFORMATION
  Report Type: Spontaneous
  Country: US (occurrence: None)
  Receive Date: 20131219
  Receipt Date: 20131219
  Transmission Date: 20140711
  Serious: No
  Sender: FDA-Public Use
  Company Number: None

PATIENT
  Age: 54 Year
  Sex: Male
  Weight: 97.52 kg

DRUGS (6)
  1. AVASTIN [Suspect]
     Indication: COLON CANCER
     Dosage: STILL TAKING EVERY 2-3 WEEKS
     Route: 042
     Dates: start: 201311
  2. AVASTIN [Suspect]
     Indication: METASTASES TO LIVER
     Dosage: STILL TAKING EVERY 2-3 WEEKS
     Route: 042
     Dates: start: 201311
  3. LISINOPRIL [Concomitant]
  4. CHEMO [Concomitant]
  5. VITAMIN D3 [Concomitant]
  6. MULTIVITAMINS WITH MINERALS [Concomitant]

REACTIONS (2)
  - Dermatitis [None]
  - Naevus flammeus [None]
